FAERS Safety Report 6680910-5 (Version None)
Quarter: 2010Q2

REPORT INFORMATION
  Report Type: 
  Country: None (occurrence: None)
  Receive Date: 20100413
  Receipt Date: 20100413
  Transmission Date: 20101027
  Serious: Yes (Other)
  Sender: FDA-Public Use
  Company Number: None

PATIENT
  Sex: Female
  Weight: 65.7716 kg

DRUGS (10)
  1. EMSAM [Suspect]
     Indication: MAJOR DEPRESSION
     Dosage: 6MG ONCE DAILY TRANSDERMAL, 2+ YEARS
     Route: 062
  2. ABILIFY [Concomitant]
  3. NEURONTIN [Concomitant]
  4. MORPHINE SULFATE XR [Concomitant]
  5. MORPHINE SULFATE [Concomitant]
  6. ALPRAZOLAM ER [Concomitant]
  7. ROZREREM [Concomitant]
  8. MULTI-VITAMIN [Concomitant]
  9. MAGNESIUM CITRATE SUPPLEMENT [Concomitant]
  10. CALCIUM SUPPLEMENT [Concomitant]

REACTIONS (1)
  - APPLICATION SITE ERYTHEMA [None]
